FAERS Safety Report 7335592-6 (Version None)
Quarter: 2011Q1

REPORT INFORMATION
  Report Type: 
  Country: None (occurrence: None)
  Receive Date: 20110301
  Receipt Date: 20110301
  Transmission Date: 20110831
  Serious: No
  Sender: FDA-Public Use
  Company Number: None

PATIENT
  Sex: Female
  Weight: 91 kg

DRUGS (16)
  1. PROVACHOL [Concomitant]
  2. BUMEX [Concomitant]
  3. HUMULIN R [Concomitant]
  4. BMX MOUTHWASH [Concomitant]
  5. FOLIC ACID [Concomitant]
  6. SYNTHROID [Concomitant]
  7. ZESTRIL [Concomitant]
  8. CARBOPLATIN [Suspect]
     Dosage: 600 MG
     Dates: end: 20110216
  9. COUMADIN [Concomitant]
  10. HYDROCODONE BITARTRATE [Concomitant]
  11. TOPROL-XL [Concomitant]
  12. K-DUR [Concomitant]
  13. COMPAZINE [Concomitant]
  14. FERROUS SULFATE TAB [Concomitant]
  15. MULTI-VITAMIN [Concomitant]
  16. TAXOL [Suspect]
     Dosage: 402 MG
     Dates: end: 20110216

REACTIONS (2)
  - WHITE BLOOD CELL COUNT INCREASED [None]
  - WHITE BLOOD CELL COUNT DECREASED [None]
